FAERS Safety Report 5083710-5 (Version None)
Quarter: 2006Q3

REPORT INFORMATION
  Report Type: 
  Country: None (occurrence: None)
  Receive Date: 20060818
  Receipt Date: 20040827
  Transmission Date: 20061208
  Serious: Yes (Hospitalization, Disabling)
  Sender: FDA-Public Use
  Company Number: US-ROCHE-379094

PATIENT
  Age: 24 Year
  Sex: Male
  Weight: 81.6 kg

DRUGS (2)
  1. ACCUTANE [Suspect]
     Indication: ACNE
     Route: 048
     Dates: start: 19850915, end: 19851215
  2. ACCUTANE [Suspect]
     Route: 048
     Dates: start: 20031114

REACTIONS (11)
  - COLITIS [None]
  - COLITIS ULCERATIVE [None]
  - DYSKINESIA [None]
  - FATIGUE [None]
  - GASTROINTESTINAL DISORDER [None]
  - HEADACHE [None]
  - INFLAMMATORY BOWEL DISEASE [None]
  - INTESTINAL HAEMORRHAGE [None]
  - MYALGIA [None]
  - OESOPHAGITIS [None]
  - WEIGHT DECREASED [None]
